FAERS Safety Report 21391964 (Version 2)
Quarter: 2022Q4

REPORT INFORMATION
  Report Type: Spontaneous
  Country: US (occurrence: None)
  Receive Date: 20220929
  Receipt Date: 20221024
  Transmission Date: 20230112
  Serious: No
  Sender: FDA-Public Use
  Company Number: 2022A328288

PATIENT
  Age: 14058 Day
  Sex: Female
  Weight: 118.8 kg

DRUGS (5)
  1. TEZSPIRE [Suspect]
     Active Substance: TEZEPELUMAB-EKKO
     Indication: Asthma
     Route: 058
     Dates: start: 20220827, end: 20220827
  2. OMEPRAZOLE [Suspect]
     Active Substance: OMEPRAZOLE
     Route: 048
     Dates: start: 20220806
  3. BUDESONIDE [Suspect]
     Active Substance: BUDESONIDE
     Dosage: 2MG/ML EVERY FOUR WEEKS
     Route: 055
     Dates: start: 20220806
  4. SPIRIVA [Concomitant]
     Active Substance: TIOTROPIUM BROMIDE MONOHYDRATE
  5. ZOLAR [Concomitant]

REACTIONS (5)
  - Rash pruritic [Unknown]
  - Rash [Unknown]
  - Rash papular [Recovered/Resolved]
  - Peripheral swelling [Unknown]
  - Oedema [Not Recovered/Not Resolved]

NARRATIVE: CASE EVENT DATE: 20220807
